FAERS Safety Report 21266660 (Version 2)
Quarter: 2022Q3

REPORT INFORMATION
  Report Type: Spontaneous
  Country: TH (occurrence: TH)
  Receive Date: 20220829
  Receipt Date: 20220929
  Transmission Date: 20221026
  Serious: Yes (Other)
  Sender: FDA-Public Use
  Company Number: TH-JUBILANT CADISTA PHARMACEUTICALS-2022JUB00230

PATIENT
  Age: 2 Year
  Sex: Male

DRUGS (4)
  1. MONTELUKAST SODIUM [Suspect]
     Active Substance: MONTELUKAST SODIUM
     Indication: Bronchial hyperreactivity
     Dosage: RECEIVED A FEW DOSES AT AGE OF 9 MONTHS
     Route: 065
  2. MONTELUKAST SODIUM [Suspect]
     Active Substance: MONTELUKAST SODIUM
     Dosage: 4 MG GRANULE 1 SACHET, 1X/DAY
     Route: 048
  3. MONTELUKAST SODIUM [Suspect]
     Active Substance: MONTELUKAST SODIUM
     Dosage: GIVEN 1/2 OF (10 MG) TABLET 5 MG, 1X/DAY
     Route: 048
  4. FLUTICASONE PROPIONATE\SALMETEROL XINAFOATE [Concomitant]
     Active Substance: FLUTICASONE PROPIONATE\SALMETEROL XINAFOATE
     Indication: Bronchial hyperreactivity
     Dosage: 1 PUFF VIA NEBULIZER ONCE DAILY

REACTIONS (1)
  - Apathy [Recovered/Resolved]
